FAERS Safety Report 4881577-9 (Version None)
Quarter: 2005Q4

REPORT INFORMATION
  Report Type: 
  Country: None (occurrence: None)
  Receive Date: 20051209
  Receipt Date: 20050811
  Transmission Date: 20060501
  Serious: Yes (Other)
  Sender: FDA-Public Use
  Company Number: USA-2005-0021027

PATIENT
  Age: 43 Year
  Sex: Male

DRUGS (4)
  1. OXYCONTIN [Suspect]
     Indication: PAIN
  2. PERCOCET [Concomitant]
  3. AMITRIPTYLINE HCL [Concomitant]
  4. AMBIEN [Concomitant]

REACTIONS (1)
  - DRUG ABUSER [None]
